FAERS Safety Report 9949528 (Version 1)
Quarter: 2014Q1

REPORT INFORMATION
  Report Type: Report from Study
  Country: CZ (occurrence: CZ)
  Receive Date: 20140304
  Receipt Date: 20140304
  Transmission Date: 20141002
  Serious: Yes (Hospitalization, Other)
  Sender: FDA-Public Use
  Company Number: CZ-BAYER-2014-028437

PATIENT
  Age: 34 Year
  Sex: Female
  Weight: 66 kg

DRUGS (2)
  1. MIRENA [Suspect]
     Indication: CONTRACEPTION
     Dosage: 20 MCG/24HR, CONT
     Route: 015
     Dates: start: 20130221, end: 20131230
  2. MIRENA [Suspect]
     Indication: MENORRHAGIA

REACTIONS (8)
  - Salpingitis [Recovered/Resolved]
  - Oophoritis [Recovered/Resolved]
  - Adnexa uteri mass [Recovered/Resolved]
  - Ovarian cyst [None]
  - Menstruation irregular [Recovered/Resolved]
  - Pelvic pain [Recovered/Resolved]
  - Perineal pain [Recovered/Resolved]
  - Ovarian abscess [Recovered/Resolved]
